FAERS Safety Report 6157939-9 (Version None)
Quarter: 2009Q2

REPORT INFORMATION
  Report Type: 
  Country: None (occurrence: None)
  Receive Date: 20090417
  Receipt Date: 20090414
  Transmission Date: 20091009
  Serious: Yes (Death)
  Sender: FDA-Public Use
  Company Number: PH-JNJFOC-20090403202

PATIENT

DRUGS (1)
  1. DORIBAX [Suspect]
     Indication: SEPSIS
     Route: 041

REACTIONS (1)
  - SEPSIS [None]
